FAERS Safety Report 20737198 (Version 5)
Quarter: 2022Q3

REPORT INFORMATION
  Report Type: Spontaneous
  Country: JP (occurrence: JP)
  Receive Date: 20220421
  Receipt Date: 20220720
  Transmission Date: 20221026
  Serious: Yes (Life-Threatening, Hospitalization, Other)
  Sender: FDA-Public Use
  Company Number: JP-SA-2022SA137044

PATIENT
  Age: 10 Month
  Sex: Male
  Weight: 10.4 kg

DRUGS (13)
  1. SABRIL [Suspect]
     Active Substance: VIGABATRIN
     Indication: Infantile spasms
     Dosage: 225 MG, BID
     Route: 048
     Dates: start: 20210302, end: 20210304
  2. SABRIL [Suspect]
     Active Substance: VIGABATRIN
     Indication: Infantile spasms
     Dosage: 450 MG, BID
     Route: 048
     Dates: start: 20210305, end: 20210907
  3. SABRIL [Suspect]
     Active Substance: VIGABATRIN
     Dosage: 550 MG, BID
     Route: 048
     Dates: start: 20210908, end: 20211021
  4. SABRIL [Suspect]
     Active Substance: VIGABATRIN
     Dosage: 650 MG, BID
     Route: 048
     Dates: start: 20211022
  5. SABRIL [Suspect]
     Active Substance: VIGABATRIN
     Dosage: 1500 MG/DAY
     Route: 048
  6. SABRIL [Suspect]
     Active Substance: VIGABATRIN
     Dosage: 1000 MG/DAY
     Route: 048
  7. SABRIL [Suspect]
     Active Substance: VIGABATRIN
     Dosage: UNK
     Route: 048
  8. VALPROATE SODIUM [Concomitant]
     Active Substance: VALPROATE SODIUM
     Indication: Infantile spasms
     Dosage: DAILY DOSE: 200 MG
     Route: 048
  9. ZONISAMIDE [Concomitant]
     Active Substance: ZONISAMIDE
     Indication: Infantile spasms
     Dosage: DAILY DOSE: 50 MG
     Route: 048
  10. ADENOSINE TRIPHOSPHATE DISODIUM [Concomitant]
     Active Substance: ADENOSINE TRIPHOSPHATE DISODIUM
     Indication: Supraventricular tachycardia
     Dosage: DAILY DOSE: 13 MG
     Route: 042
     Dates: start: 20210415, end: 20210415
  11. CARNITINE HYDROCHLORIDE [Concomitant]
     Indication: Prophylaxis
     Dosage: DAILY DOSE: 400 MG
     Route: 048
  12. CARNITINE HYDROCHLORIDE [Concomitant]
     Indication: Investigation
  13. RYTHMODAN [DISOPYRAMIDE] [Concomitant]
     Indication: Supraventricular tachycardia
     Dosage: DAILY DOSE: 120 MG
     Route: 065

REACTIONS (5)
  - Supraventricular tachycardia [Recovered/Resolved]
  - Febrile convulsion [Recovered/Resolved]
  - COVID-19 [Recovered/Resolved]
  - Febrile convulsion [Recovered/Resolved]
  - Retinogram abnormal [Unknown]

NARRATIVE: CASE EVENT DATE: 20210415
